FAERS Safety Report 8174755-7 (Version None)
Quarter: 2012Q1

REPORT INFORMATION
  Report Type: 
  Country: None (occurrence: None)
  Receive Date: 20120229
  Receipt Date: 20120222
  Transmission Date: 20120608
  Serious: Yes (Other)
  Sender: FDA-Public Use
  Company Number: US-UCBSA-052230

PATIENT
  Age: 49 Year
  Sex: Female
  Weight: 94.9 kg

DRUGS (12)
  1. FLEXERIL [Suspect]
     Indication: MUSCLE SPASMS
     Route: 048
     Dates: start: 20080101
  2. GABAPENTIN [Suspect]
     Indication: NERVE INJURY
     Dates: start: 20060101
  3. HYDROCODONE BITARTRATE AND ACETAMINOPHEN [Suspect]
     Indication: PAIN
     Dosage: 500/10 MG
     Route: 048
     Dates: start: 20060101
  4. CHANTIX [Suspect]
     Indication: SMOKING CESSATION THERAPY
     Dosage: DAILY DOSE: 0.5 MG
     Route: 048
     Dates: start: 20120130, end: 20120101
  5. CYMBALTA [Suspect]
     Indication: RETROPERITONEAL FIBROSIS
     Dosage: DAILY DOSE:60 MG
     Route: 048
     Dates: start: 20080101
  6. FLEXERIL [Suspect]
     Indication: RETROPERITONEAL FIBROSIS
     Route: 048
     Dates: start: 20080101
  7. GABAPENTIN [Suspect]
     Indication: RETROPERITONEAL FIBROSIS
     Dates: start: 20060101
  8. LEVOTHYROXINE SODIUM [Suspect]
     Indication: RETROPERITONEAL FIBROSIS
     Dosage: DAILY DOSE :0.137 MCG
     Route: 048
     Dates: start: 20060101
  9. HYDROCODONE BITARTRATE AND ACETAMINOPHEN [Suspect]
     Indication: RETROPERITONEAL FIBROSIS
     Dosage: 500/10 MG
     Route: 048
     Dates: start: 20060101
  10. CYMBALTA [Suspect]
     Indication: FIBROMYALGIA
     Dosage: DAILY DOSE:60 MG
     Route: 048
     Dates: start: 20080101
  11. LEVOTHYROXINE SODIUM [Suspect]
     Indication: THYROID DISORDER
     Dosage: DAILY DOSE :0.137 MCG
     Route: 048
     Dates: start: 20060101
  12. NO CONCOMITANT MEDICATION [Concomitant]

REACTIONS (3)
  - MYALGIA [None]
  - NAUSEA [None]
  - MEMORY IMPAIRMENT [None]
